FAERS Safety Report 4510894-7 (Version None)
Quarter: 2005Q1

REPORT INFORMATION
  Report Type: 
  Country: None (occurrence: None)
  Receive Date: 20041025
  Receipt Date: 20040726
  Transmission Date: 20050727
  Serious: Yes (Other)
  Sender: FDA-Public Use
  Company Number: NSADSS2002046205

PATIENT
  Age: 71 Year
  Sex: Female
  Weight: 68.9467 kg

DRUGS (11)
  1. REMICADE [Suspect]
     Indication: RHEUMATOID ARTHRITIS
     Dosage: SEE IMAGE
     Route: 041
     Dates: start: 20010101, end: 20010101
  2. REMICADE [Suspect]
     Indication: RHEUMATOID ARTHRITIS
     Dosage: SEE IMAGE
     Route: 041
     Dates: start: 20021209, end: 20021209
  3. ANTI-TUBERCULIN THERAPY (ALL OTHER THERAPEUTIC PRODUCTS) [Suspect]
     Indication: TUBERCULOSIS
  4. BIAXIN [Concomitant]
  5. PREDNISONE [Concomitant]
  6. TOPROL-XL [Concomitant]
  7. PLAVIX [Concomitant]
  8. NEXIUM [Concomitant]
  9. CLONIDINE [Concomitant]
  10. TYLENOL W/ CODEINE NO. 3 [Concomitant]
  11. PREVACID [Concomitant]

REACTIONS (4)
  - HEPATITIS [None]
  - MEMORY IMPAIRMENT [None]
  - SKIN ULCER [None]
  - TUBERCULOSIS [None]
